FAERS Safety Report 6522264-0 (Version None)
Quarter: 2009Q4

REPORT INFORMATION
  Report Type: 
  Country: None (occurrence: None)
  Receive Date: 20091230
  Receipt Date: 20091229
  Transmission Date: 20100525
  Serious: Yes (Life-Threatening, Hospitalization, Other)
  Sender: FDA-Public Use
  Company Number: GXKR2009DE13877

PATIENT
  Age: 42 Year
  Sex: Male
  Weight: 89 kg

DRUGS (11)
  1. VALPROATE (NGX) [Suspect]
     Indication: ALCOHOL WITHDRAWAL SYNDROME
     Dosage: 300 MG, UNK
     Route: 048
     Dates: start: 20080218, end: 20080402
  2. CONVULEX ^BYK GULDEN^ [Suspect]
     Indication: DELIRIUM TREMENS
     Dosage: 300 MG, UNK
     Route: 048
     Dates: start: 20080218, end: 20080402
  3. HALDOL [Suspect]
     Indication: DELIRIUM TREMENS
     Dosage: 5 MG, UNK
     Route: 042
     Dates: start: 20080327, end: 20080330
  4. HALDOL [Suspect]
     Dosage: 15 MG, QD
     Route: 048
     Dates: start: 20080327, end: 20080327
  5. HALDOL [Suspect]
     Dosage: 15 MG, QD
     Route: 048
     Dates: start: 20080327, end: 20080327
  6. HYDROCHLOROTHIAZIDE [Concomitant]
     Route: 048
  7. RAMIPRIL [Concomitant]
     Indication: HYPERTENSION
     Dosage: UNK
     Route: 048
     Dates: start: 20070801, end: 20080327
  8. METOPROLOL SUCCINATE [Concomitant]
     Route: 048
  9. DIAZEPAM [Concomitant]
     Route: 042
  10. DIAZEPAM [Concomitant]
     Route: 048
  11. LORAZEPAM [Concomitant]
     Route: 048

REACTIONS (2)
  - LONG QT SYNDROME [None]
  - TORSADE DE POINTES [None]
